FAERS Safety Report 9694826 (Version 2)
Quarter: 2014Q1

REPORT INFORMATION
  Report Type: Report from Study
  Country: JP (occurrence: JP)
  Receive Date: 20131119
  Receipt Date: 20140101
  Transmission Date: 20141002
  Serious: Yes (Life-Threatening, Hospitalization)
  Sender: FDA-Public Use
  Company Number: JP-AMGEN-JPNCT2013080841

PATIENT
  Age: 62 Year
  Sex: Female
  Weight: 60 kg

DRUGS (27)
  1. DARBEPOETIN ALFA [Suspect]
     Indication: NEPHROGENIC ANAEMIA
     Dosage: 30 MUG, Q4WK
     Route: 058
     Dates: start: 20110721, end: 20130131
  2. NU-LOTAN [Concomitant]
     Indication: DIABETIC NEPHROPATHY
     Dosage: UNK
     Route: 048
  3. CONIEL [Concomitant]
     Indication: HYPERTENSION
     Dosage: UNK
     Route: 048
  4. LUPRAC [Concomitant]
     Dosage: UNK
     Route: 048
  5. ANZIEF [Concomitant]
     Dosage: UNK
     Route: 048
  6. LIPITOR [Concomitant]
     Dosage: UNK
     Route: 048
  7. SHAKUYAKUKANZOTO [Concomitant]
     Indication: DIABETIC NEPHROPATHY
     Dosage: UNK
     Route: 048
  8. ARTIST [Concomitant]
     Dosage: UNK
     Route: 048
  9. IRBETAN [Concomitant]
     Dosage: UNK
     Route: 048
  10. LIVALO [Concomitant]
     Dosage: UNK
     Route: 048
  11. FLUITRAN [Concomitant]
     Dosage: UNK
     Route: 048
  12. BAYASPIRIN [Concomitant]
     Dosage: UNK
     Route: 048
  13. PLAVIX [Concomitant]
     Dosage: UNK
     Route: 048
  14. SIGMART [Concomitant]
     Dosage: UNK
     Route: 048
  15. LEVOTHYROXINE NA [Concomitant]
     Dosage: UNK
     Route: 048
  16. OMEPRAL                            /00661201/ [Concomitant]
     Dosage: UNK
     Route: 048
  17. LASIX                              /00032601/ [Concomitant]
     Indication: DIABETIC NEPHROPATHY
     Dosage: UNK
     Route: 048
  18. BLOPRESS [Concomitant]
     Dosage: UNK
     Route: 048
  19. CRESTOR [Concomitant]
     Dosage: UNK
     Route: 048
  20. AMARYL [Concomitant]
     Dosage: UNK
     Route: 048
  21. JANUVIA [Concomitant]
     Dosage: UNK
     Route: 048
  22. KINEDAK [Concomitant]
     Dosage: UNK
     Route: 048
  23. MIRCERA [Concomitant]
     Indication: DIABETIC NEPHROPATHY
     Dosage: UNK
     Route: 065
  24. NEXIUM                             /01479302/ [Concomitant]
     Indication: PROPHYLAXIS
     Dosage: UNK
     Route: 048
  25. SEIBULE [Concomitant]
     Dosage: UNK
     Route: 048
  26. EQUA [Concomitant]
     Dosage: UNK
     Route: 048
  27. NATRIX [Concomitant]
     Dosage: UNK
     Route: 048

REACTIONS (2)
  - Acute myocardial infarction [Recovering/Resolving]
  - Angina pectoris [Recovering/Resolving]
